FAERS Safety Report 15980515 (Version 1)
Quarter: 2019Q1

REPORT INFORMATION
  Report Type: Spontaneous
  Country: US (occurrence: US)
  Receive Date: 20190124
  Receipt Date: 20190124
  Transmission Date: 20190418
  Serious: No
  Sender: FDA-Public Use
  Company Number: None

PATIENT
  Age: 35 Year
  Sex: Male

DRUGS (1)
  1. MAVYRET [Suspect]
     Active Substance: GLECAPREVIR\PIBRENTASVIR
     Dates: start: 201801

REACTIONS (5)
  - Fatigue [None]
  - Eye pruritus [None]
  - Rhinorrhoea [None]
  - Sneezing [None]
  - Hypersensitivity [None]

NARRATIVE: CASE EVENT DATE: 20190113
